FAERS Safety Report 13070931 (Version 1)
Quarter: 2016Q4

REPORT INFORMATION
  Report Type: Report from Study
  Country: BR (occurrence: BR)
  Receive Date: 20161229
  Receipt Date: 20161229
  Transmission Date: 20170207
  Serious: Yes (Other)
  Sender: FDA-Public Use
  Company Number: PHHY2016BR179242

PATIENT
  Sex: Male

DRUGS (1)
  1. EXELON [Suspect]
     Active Substance: RIVASTIGMINE TARTRATE
     Indication: PRODUCT USED FOR UNKNOWN INDICATION
     Route: 065

REACTIONS (6)
  - Sluggishness [Unknown]
  - Malaise [Unknown]
  - Dementia Alzheimer^s type [Unknown]
  - Ligament sprain [Unknown]
  - Thrombosis [Unknown]
  - Parkinson^s disease [Unknown]
